FAERS Safety Report 8971059 (Version 1)
Quarter: 2012Q4

REPORT INFORMATION
  Report Type: 
  Country: US (occurrence: US)
  Receive Date: 20121218
  Receipt Date: 20121218
  Transmission Date: 20130627
  Serious: Yes (Other)
  Sender: FDA-Public Use
  Company Number: US-BRISTOL-MYERS SQUIBB COMPANY-16480980

PATIENT
  Sex: Male

DRUGS (11)
  1. ABILIFY [Suspect]
     Indication: BIPOLAR II DISORDER
     Dosage: Restarted on 10-Mar-2012
     Dates: start: 2011
  2. ABILIFY [Suspect]
     Indication: DEPRESSION
     Dosage: Restarted on 10-Mar-2012
     Dates: start: 2011
  3. EFFEXOR [Suspect]
     Indication: BIPOLAR II DISORDER
  4. EFFEXOR [Suspect]
     Indication: DEPRESSION
  5. LAMICTAL [Suspect]
     Indication: BIPOLAR II DISORDER
  6. LAMICTAL [Suspect]
     Indication: DEPRESSION
  7. REQUIP [Suspect]
  8. FENTANYL PATCH [Concomitant]
  9. CELEBREX [Concomitant]
  10. OMEPRAZOLE [Concomitant]
  11. OXYMORPHONE [Concomitant]

REACTIONS (3)
  - Dyskinesia [Not Recovered/Not Resolved]
  - Syncope [Unknown]
  - Depression [Not Recovered/Not Resolved]
